FAERS Safety Report 21543726 (Version 2)
Quarter: 2024Q3

REPORT INFORMATION
  Report Type: Report from Study
  Country: US (occurrence: US)
  Receive Date: 20221102
  Receipt Date: 20240906
  Transmission Date: 20241017
  Serious: No
  Sender: ABBVIE
  Company Number: US-ABBVIE-22K-163-4469819-00

PATIENT
  Sex: Male

DRUGS (1)
  1. HUMIRA [Suspect]
     Active Substance: ADALIMUMAB
     Indication: Rheumatoid arthritis
     Dosage: CITRATE FREE? FORM STRENGTH: 40 MILLIGRAM
     Route: 058

REACTIONS (4)
  - Gait disturbance [Unknown]
  - Pain [Unknown]
  - Peripheral swelling [Unknown]
  - Arthritis [Unknown]
